FAERS Safety Report 5068671-7 (Version None)
Quarter: 2006Q3

REPORT INFORMATION
  Report Type: 
  Country: None (occurrence: None)
  Receive Date: 20060802
  Receipt Date: 20060203
  Transmission Date: 20061208
  Serious: No
  Sender: FDA-Public Use
  Company Number: US-BRISTOL-MYERS SQUIBB COMPANY-13271465

PATIENT
  Age: 69 Year
  Sex: Female
  Weight: 63 kg

DRUGS (3)
  1. COUMADIN [Suspect]
     Indication: AORTIC VALVE REPLACEMENT
  2. COUMADIN [Suspect]
     Indication: MITRAL VALVE REPLACEMENT
  3. PREVACID [Suspect]
     Dates: start: 20060124

REACTIONS (1)
  - INTERNATIONAL NORMALISED RATIO INCREASED [None]
